FAERS Safety Report 9455451 (Version 2)
Quarter: 2013Q4

REPORT INFORMATION
  Report Type: Spontaneous
  Country: JP (occurrence: JP)
  Receive Date: 20130813
  Receipt Date: 20131223
  Transmission Date: 20140711
  Serious: Yes (Hospitalization)
  Sender: FDA-Public Use
  Company Number: JP-JNJFOC-20130804788

PATIENT
  Age: 90 Year
  Sex: Female

DRUGS (5)
  1. FINIBAX [Suspect]
     Indication: URINARY TRACT INFECTION
     Dosage: DR ROUTE OF DRUG ADMINISTRATION
     Route: 042
     Dates: start: 20130511, end: 20130515
  2. INOVAN [Concomitant]
     Dosage: DR ROUTE OF DRUG ADMINISTRATION
     Route: 065
     Dates: start: 20130513, end: 20130717
  3. GASTER [Concomitant]
     Dosage: DR ROUTE OF DRUG ADMINISTRATION
     Route: 065
     Dates: start: 20130512, end: 20130527
  4. VITAMEDIN [Concomitant]
     Dosage: DR ROUTE OF DRUG ADMINISTRATION
     Route: 065
  5. SOLDEM 3A [Concomitant]
     Dosage: DR ROUTE OF DRUG ADMINISTRATION
     Route: 065

REACTIONS (1)
  - Blood creatine phosphokinase increased [Recovered/Resolved]
